FAERS Safety Report 5801690-9 (Version None)
Quarter: 2008Q3

REPORT INFORMATION
  Report Type: 
  Country: None (occurrence: None)
  Receive Date: 20080707
  Receipt Date: 20080623
  Transmission Date: 20090109
  Serious: Yes (Hospitalization)
  Sender: FDA-Public Use
  Company Number: B0526611A

PATIENT
  Age: 73 Year
  Sex: Female

DRUGS (15)
  1. AUGMENTIN '125' [Suspect]
     Indication: DIVERTICULUM INTESTINAL
     Dosage: 1G THREE TIMES PER DAY
     Route: 048
     Dates: start: 20080507, end: 20080515
  2. FLAGYL [Suspect]
     Indication: SIGMOIDITIS
     Dosage: 500MG TWICE PER DAY
     Route: 048
     Dates: start: 20080505, end: 20080515
  3. SPASFON [Suspect]
     Indication: ABDOMINAL PAIN
     Route: 048
     Dates: start: 20080507, end: 20080515
  4. BEFIZAL LP [Concomitant]
     Indication: DRUG USE FOR UNKNOWN INDICATION
     Route: 048
  5. VALSARTAN AND HYDROCHLOROTHIAZIDE [Concomitant]
     Indication: DRUG USE FOR UNKNOWN INDICATION
     Route: 048
  6. DIAMICRON [Concomitant]
     Indication: DRUG USE FOR UNKNOWN INDICATION
     Route: 065
  7. TANGANIL [Concomitant]
     Indication: DRUG USE FOR UNKNOWN INDICATION
     Route: 048
  8. IMODIUM [Concomitant]
     Indication: DRUG USE FOR UNKNOWN INDICATION
     Route: 065
  9. DAFALGAN 500 MG [Concomitant]
     Indication: DRUG USE FOR UNKNOWN INDICATION
     Route: 048
  10. NOCTRAN 10 [Concomitant]
     Indication: DRUG USE FOR UNKNOWN INDICATION
     Route: 048
  11. NIFUROXAZIDE [Concomitant]
     Indication: DRUG USE FOR UNKNOWN INDICATION
     Route: 065
  12. AMOXICILLIN [Concomitant]
     Indication: DIVERTICULUM INTESTINAL
     Dosage: 2G PER DAY
     Route: 048
     Dates: start: 20080505, end: 20080507
  13. METEOSPASMYL [Concomitant]
     Indication: DIVERTICULUM INTESTINAL
     Dosage: 2CAP THREE TIMES PER DAY
     Route: 048
     Dates: start: 20080505, end: 20080507
  14. FORLAX [Concomitant]
     Indication: DIVERTICULUM INTESTINAL
     Dosage: 10G PER DAY
     Route: 048
     Dates: start: 20080505, end: 20080507
  15. KETUM GEL [Concomitant]
     Indication: DIVERTICULUM INTESTINAL
     Route: 061
     Dates: start: 20080505, end: 20080507

REACTIONS (10)
  - ACUTE GENERALISED EXANTHEMATOUS PUSTULOSIS [None]
  - BLISTER [None]
  - DERMATITIS EXFOLIATIVE [None]
  - ERYTHEMA [None]
  - HYPERTHERMIA [None]
  - INFLAMMATION [None]
  - LEUKOCYTOSIS [None]
  - MUCOUS MEMBRANE DISORDER [None]
  - RASH [None]
  - SKIN DISORDER [None]
